FAERS Safety Report 11428092 (Version 1)
Quarter: 2015Q3

REPORT INFORMATION
  Report Type: Spontaneous
  Country: US (occurrence: None)
  Receive Date: 20150827
  Receipt Date: 20150827
  Transmission Date: 20151125
  Serious: Yes (Other)
  Sender: FDA-Public Use
  Company Number: None

PATIENT
  Age: 72 Year
  Sex: Female
  Weight: 56.7 kg

DRUGS (7)
  1. VITAMIN D3 [Concomitant]
     Active Substance: CHOLECALCIFEROL
  2. CULTURELLE PROBIOTIC [Concomitant]
  3. CRESTOR [Concomitant]
     Active Substance: ROSUVASTATIN CALCIUM
  4. PROLIA [Suspect]
     Active Substance: DENOSUMAB
     Indication: OSTEOPOROSIS
     Dosage: TWO INJECTIONS APR  OCT/2014
     Dates: start: 20140411, end: 20141013
  5. CRANBERRY CAPSULE [Concomitant]
     Active Substance: DIETARY SUPPLEMENT
  6. MULTI VITAMIN [Concomitant]
     Active Substance: VITAMINS
  7. PROTONIX [Concomitant]
     Active Substance: PANTOPRAZOLE SODIUM

REACTIONS (5)
  - Tendon disorder [None]
  - Treatment failure [None]
  - Abdominal pain lower [None]
  - Muscle spasms [None]
  - Pain in jaw [None]

NARRATIVE: CASE EVENT DATE: 20141031
